FAERS Safety Report 8841754 (Version 1)
Quarter: 2012Q4

REPORT INFORMATION
  Report Type: 
  Country: KR (occurrence: KR)
  Receive Date: 20121016
  Receipt Date: 20121016
  Transmission Date: 20130627
  Serious: No
  Sender: FDA-Public Use
  Company Number: KR-UCBSA-068710

PATIENT
  Age: 54 Year
  Sex: Male

DRUGS (2)
  1. KEPPRA [Suspect]
     Indication: EPILEPSY
     Route: 048
     Dates: start: 20121005, end: 20121008
  2. PHENYTOIN [Suspect]
     Indication: EPILEPSY
     Route: 042
     Dates: start: 20120920, end: 20121004

REACTIONS (1)
  - Leukopenia [Unknown]
